FAERS Safety Report 5302125-5 (Version None)
Quarter: 2007Q2

REPORT INFORMATION
  Report Type: 
  Country: None (occurrence: None)
  Receive Date: 20070419
  Receipt Date: 20070413
  Transmission Date: 20071010
  Serious: Yes (Life-Threatening, Other)
  Sender: FDA-Public Use
  Company Number: CN-GLAXOSMITHKLINE-B0466746A

PATIENT
  Age: 72 Year
  Sex: Male
  Weight: 63 kg

DRUGS (3)
  1. SERETIDE [Suspect]
     Indication: COUGH
     Route: 055
     Dates: start: 20070201, end: 20070320
  2. AMINOPHYLLINE [Concomitant]
     Route: 048
  3. PREDNISOLONE [Concomitant]
     Route: 048

REACTIONS (7)
  - ANOXIA [None]
  - ASTHENIA [None]
  - BLOOD PRESSURE DECREASED [None]
  - BRONCHITIS [None]
  - DIZZINESS [None]
  - DYSPNOEA [None]
  - HYPOAESTHESIA ORAL [None]
